FAERS Safety Report 6113869-X (Version None)
Quarter: 2009Q1

REPORT INFORMATION
  Report Type: 
  Country: None (occurrence: None)
  Receive Date: 20090312
  Receipt Date: 20090225
  Transmission Date: 20090719
  Serious: Yes (Other)
  Sender: FDA-Public Use
  Company Number: US-GENENTECH-278242

PATIENT
  Sex: Female

DRUGS (2)
  1. AVASTIN [Suspect]
     Indication: BREAST CANCER
     Dosage: 10 MG/KG, QOW
     Route: 065
  2. VINORELBINE [Suspect]
     Indication: BREAST CANCER
     Dosage: 25 MG/M2, UNKNOWN
     Route: 065

REACTIONS (1)
  - MYALGIA [None]
